FAERS Safety Report 7280671-5 (Version None)
Quarter: 2011Q1

REPORT INFORMATION
  Report Type: 
  Country: None (occurrence: None)
  Receive Date: 20110208
  Receipt Date: 20110201
  Transmission Date: 20110831
  Serious: Yes (Other)
  Sender: FDA-Public Use
  Company Number: A0900154A

PATIENT
  Age: 55 Year
  Sex: Female
  Weight: 70.5 kg

DRUGS (3)
  1. XELODA [Suspect]
     Route: 048
     Dates: start: 20100901, end: 20101201
  2. KEPPRA [Concomitant]
  3. TYKERB [Suspect]
     Dosage: 5TAB PER DAY
     Route: 048
     Dates: start: 20100901, end: 20101201

REACTIONS (3)
  - RASH [None]
  - URTICARIA [None]
  - DRUG INEFFECTIVE [None]
